FAERS Safety Report 21321349 (Version 1)
Quarter: 2022Q3

REPORT INFORMATION
  Report Type: Spontaneous
  Country: TR (occurrence: TR)
  Receive Date: 20220912
  Receipt Date: 20220912
  Transmission Date: 20221027
  Serious: Yes (Hospitalization, Other)
  Sender: FDA-Public Use
  Company Number: TR-JNJFOC-20220902288

PATIENT
  Age: 10 Year
  Sex: Male

DRUGS (3)
  1. FENTANYL [Suspect]
     Active Substance: FENTANYL
     Indication: Pyrexia
     Dosage: 2 OF 25 MCG
     Route: 065
  2. FENTANYL [Suspect]
     Active Substance: FENTANYL
     Indication: Cough
  3. FENTANYL [Suspect]
     Active Substance: FENTANYL
     Indication: Chest pain

REACTIONS (2)
  - Respiratory arrest [Unknown]
  - Off label use [Unknown]
